FAERS Safety Report 9209991 (Version 1)
Quarter: 2013Q2

REPORT INFORMATION
  Report Type: Spontaneous
  Country: US (occurrence: US)
  Receive Date: 20130404
  Receipt Date: 20130404
  Transmission Date: 20140414
  Serious: No
  Sender: FDA-Public Use
  Company Number: US-ASTELLAS-2013US003533

PATIENT
  Sex: Female

DRUGS (3)
  1. MYRBETRIQ [Suspect]
     Indication: HYPERTONIC BLADDER
     Dosage: 0.5 DF, UID/QD
     Route: 048
     Dates: start: 20130323
  2. MYRBETRIQ [Suspect]
     Dosage: 50 MG, UID/QD
     Route: 048
     Dates: start: 20130323
  3. VENLAFAXINE [Concomitant]
     Indication: ANTIDEPRESSANT THERAPY
     Dosage: 375 MG, UID/QD
     Route: 048
     Dates: start: 2012

REACTIONS (3)
  - Wrong technique in drug usage process [Unknown]
  - Intentional drug misuse [Unknown]
  - Cystitis [Unknown]
